FAERS Safety Report 15189994 (Version 1)
Quarter: 2018Q3

REPORT INFORMATION
  Report Type: Spontaneous
  Country: AU (occurrence: AU)
  Receive Date: 20180724
  Receipt Date: 20180724
  Transmission Date: 20181010
  Serious: Yes (Other)
  Sender: FDA-Public Use
  Company Number: AU-PFIZER INC-2018290469

PATIENT
  Sex: Female

DRUGS (2)
  1. XALATAN [Suspect]
     Active Substance: LATANOPROST
     Route: 047
  2. BRINZOLAMIDE [Concomitant]
     Active Substance: BRINZOLAMIDE
     Route: 047

REACTIONS (1)
  - Blindness [Unknown]
